FAERS Safety Report 16783222 (Version 1)
Quarter: 2019Q3

REPORT INFORMATION
  Report Type: Spontaneous
  Country: US (occurrence: US)
  Receive Date: 20190907
  Receipt Date: 20190907
  Transmission Date: 20191005
  Serious: No
  Sender: FDA-Public Use
  Company Number: US-ZYDUS-037986

PATIENT
  Sex: Female

DRUGS (1)
  1. MELOXICAM. [Suspect]
     Active Substance: MELOXICAM
     Indication: MENISCUS INJURY
     Route: 048
     Dates: start: 20190410, end: 20190606

REACTIONS (4)
  - Product use in unapproved indication [Recovered/Resolved]
  - Melaena [Not Recovered/Not Resolved]
  - Intentional dose omission [Recovered/Resolved]
  - Faeces hard [Not Recovered/Not Resolved]

NARRATIVE: CASE EVENT DATE: 2019
